FAERS Safety Report 14181413 (Version 1)
Quarter: 2017Q4

REPORT INFORMATION
  Report Type: Spontaneous
  Country: US (occurrence: US)
  Receive Date: 20171110
  Receipt Date: 20171110
  Transmission Date: 20180321
  Serious: Yes (Other)
  Sender: FDA-Public Use
  Company Number: None

PATIENT
  Age: 3 Year
  Sex: Male
  Weight: 14.85 kg

DRUGS (1)
  1. ZYRTEC [Suspect]
     Active Substance: CETIRIZINE HYDROCHLORIDE
     Indication: SEASONAL ALLERGY
     Dosage: ?          QUANTITY:2.5 ML;?
     Route: 048
     Dates: start: 20171101, end: 20171108

REACTIONS (5)
  - Screaming [None]
  - Aggression [None]
  - Anger [None]
  - Social avoidant behaviour [None]
  - Abnormal behaviour [None]

NARRATIVE: CASE EVENT DATE: 20171104
